FAERS Safety Report 7340798-6 (Version None)
Quarter: 2011Q1

REPORT INFORMATION
  Report Type: 
  Country: None (occurrence: None)
  Receive Date: 20110301
  Receipt Date: 20110216
  Transmission Date: 20110831
  Serious: Yes (Other)
  Sender: FDA-Public Use
  Company Number: 027726

PATIENT
  Sex: Female
  Weight: 65.7716 kg

DRUGS (3)
  1. VITAMIN B12 /00056201/ [Concomitant]
  2. CIMZIA [Suspect]
     Indication: CROHN'S DISEASE
     Dosage: (SUBCUTANEOUS) ; (2 SHOTS SUBCUTANEOUS)
     Route: 058
     Dates: start: 20090401
  3. CIMZIA [Suspect]
     Indication: CROHN'S DISEASE
     Dosage: (SUBCUTANEOUS) ; (2 SHOTS SUBCUTANEOUS)
     Route: 058
     Dates: start: 20090201

REACTIONS (6)
  - MUSCLE TWITCHING [None]
  - HYPOAESTHESIA [None]
  - DRY SKIN [None]
  - PSORIASIS [None]
  - DYSARTHRIA [None]
  - MULTIPLE SCLEROSIS [None]
